FAERS Safety Report 24028529 (Version 1)
Quarter: 2024Q2

REPORT INFORMATION
  Report Type: Spontaneous
  Country: JP (occurrence: JP)
  Receive Date: 20240628
  Receipt Date: 20240628
  Transmission Date: 20240716
  Serious: Yes (Other)
  Sender: FDA-Public Use
  Company Number: JP-BAYER-2024A091713

PATIENT
  Age: 8 Decade
  Sex: Female

DRUGS (1)
  1. EYLEA [Suspect]
     Active Substance: AFLIBERCEPT
     Indication: Macular oedema
     Dosage: UNK, SOLUTION FOR INJECTION, 40 MG/ML
     Route: 031
     Dates: start: 2022

REACTIONS (8)
  - Blindness transient [Recovered/Resolved]
  - Intraocular pressure increased [Recovered/Resolved]
  - Furuncle [Unknown]
  - Photopsia [Recovered/Resolved]
  - Visual impairment [Recovered/Resolved]
  - Eye colour change [Recovered/Resolved]
  - Ocular hyperaemia [Unknown]
  - Eye pain [Unknown]

NARRATIVE: CASE EVENT DATE: 20240619
